FAERS Safety Report 6065136-0 (Version None)
Quarter: 2009Q1

REPORT INFORMATION
  Report Type: 
  Country: None (occurrence: None)
  Receive Date: 20090204
  Receipt Date: 20090126
  Transmission Date: 20090719
  Serious: Yes (Other)
  Sender: FDA-Public Use
  Company Number: ZA-ABBOTT-09P-143-0498513-00

PATIENT
  Sex: Female
  Weight: 88 kg

DRUGS (13)
  1. HUMIRA [Suspect]
     Indication: RHEUMATOID ARTHRITIS
     Route: 058
     Dates: start: 20090107
  2. METHOTREXATE [Suspect]
     Indication: RHEUMATOID ARTHRITIS
     Route: 048
     Dates: start: 20070601
  3. LEFLUNOMIDE [Suspect]
     Indication: RHEUMATOID ARTHRITIS
     Dosage: NOS
     Route: 048
     Dates: start: 20081101
  4. PREDNISONE [Suspect]
     Indication: RHEUMATOID ARTHRITIS
     Route: 048
     Dates: start: 20070601
  5. ETORICOXIB [Suspect]
     Indication: RHEUMATOID ARTHRITIS
     Route: 048
     Dates: start: 20081101
  6. CLONAZEPAM [Suspect]
     Indication: INSOMNIA
     Route: 048
     Dates: start: 20081101
  7. ALPRAZOLAM ACTAVIS [Suspect]
     Indication: DEPRESSION
     Route: 048
     Dates: start: 20081101
  8. CILIFT [Suspect]
     Indication: DEPRESSION
     Dosage: 1 1/2-20MG TABLETS; 30MG DAILY
     Route: 048
     Dates: start: 20081101
  9. ELTROXIN [Concomitant]
     Indication: HYPOTHYROIDISM
     Route: 048
  10. LANSOPRAZOLE [Concomitant]
     Indication: ULCER
     Route: 048
     Dates: start: 20070601
  11. B-CAL-D [Concomitant]
     Indication: MINERAL SUPPLEMENTATION
     Route: 048
  12. FOLIC ACID [Concomitant]
     Indication: RHEUMATOID ARTHRITIS
     Route: 048
     Dates: start: 20070601
  13. TREPILENE [Concomitant]
     Indication: MYALGIA
     Route: 048
     Dates: start: 20081101

REACTIONS (8)
  - DYSPEPSIA [None]
  - EMBOLISM [None]
  - GASTROINTESTINAL DISORDER [None]
  - OEDEMA PERIPHERAL [None]
  - PAIN IN EXTREMITY [None]
  - RASH [None]
  - STOMATITIS [None]
  - ULCER [None]
